FAERS Safety Report 18096125 (Version 3)
Quarter: 2021Q2

REPORT INFORMATION
  Report Type: Spontaneous
  Country: CA (occurrence: CA)
  Receive Date: 20200731
  Receipt Date: 20210409
  Transmission Date: 20210717
  Serious: Yes (Hospitalization, Other)
  Sender: FDA-Public Use
  Company Number: CA-AUROBINDO-AUR-APL-2020-037037

PATIENT
  Sex: Male
  Weight: 85 kg

DRUGS (19)
  1. DIAZEPAM. [Interacting]
     Active Substance: DIAZEPAM
     Indication: SEIZURE
     Dosage: 30 MILLIGRAM, ONCE A DAY
     Route: 048
  2. DIAZEPAM. [Interacting]
     Active Substance: DIAZEPAM
     Dosage: 30 MILLIGRAM, ONCE A DAY
     Route: 065
  3. VALPROIC ACID. [Interacting]
     Active Substance: VALPROIC ACID
     Indication: SCHIZOPHRENIA
     Dosage: 5250 MILLIGRAM, ONCE A DAY
     Route: 048
  4. PROPRANOLOL [Concomitant]
     Active Substance: PROPRANOLOL HYDROCHLORIDE
     Indication: HYPERTENSION
     Dosage: 80 MILLIGRAM, ONCE A DAY
     Route: 065
  5. DIAZEPAM. [Interacting]
     Active Substance: DIAZEPAM
     Indication: SEIZURE
     Dosage: 30 MILLIGRAM
     Route: 030
  6. DIAZEPAM. [Interacting]
     Active Substance: DIAZEPAM
     Dosage: 170 MILLIGRAM, ONCE IN EVERY 2 DAYS
     Route: 065
  7. PHENYTOIN. [Interacting]
     Active Substance: PHENYTOIN
     Indication: SEIZURE
     Dosage: 600 MILLIGRAM, ONCE A DAY
     Route: 065
  8. QUETIAPINE. [Interacting]
     Active Substance: QUETIAPINE
     Indication: PSYCHOTIC DISORDER
     Dosage: 200 MILLIGRAM, AS NECESSARY
     Route: 065
  9. PROPRANOLOL [Concomitant]
     Active Substance: PROPRANOLOL HYDROCHLORIDE
     Dosage: 30 MILLIGRAM, ONCE A DAY
     Route: 065
  10. TEMAZEPAM. [Concomitant]
     Active Substance: TEMAZEPAM
     Indication: SEIZURE
     Dosage: UNK, AS NECESSARY
     Route: 065
  11. GEMFIBROZIL. [Concomitant]
     Active Substance: GEMFIBROZIL
     Indication: HYPERTENSION
     Dosage: 12 MILLIGRAM, ONCE A DAY
     Route: 065
  12. OLANZAPINE. [Suspect]
     Active Substance: OLANZAPINE
     Dosage: 5 MILLIGRAM, ONCE A DAY
     Route: 065
  13. NORDAZEPAM [Suspect]
     Active Substance: NORDAZEPAM
     Indication: PRODUCT USED FOR UNKNOWN INDICATION
     Dosage: 20 MILLIGRAM, ONCE A DAY
     Route: 065
  14. VALPROIC ACID. [Interacting]
     Active Substance: VALPROIC ACID
     Indication: SEIZURE
     Dosage: 1500 MILLIGRAM, ONCE A DAY
     Route: 048
  15. PROPRANOLOL [Concomitant]
     Active Substance: PROPRANOLOL HYDROCHLORIDE
     Dosage: 60 MILLIGRAM, ONCE A DAY
     Route: 065
  16. QUETIAPINE. [Interacting]
     Active Substance: QUETIAPINE
     Dosage: 700 MILLIGRAM, ONCE A DAY
     Route: 065
  17. PROPRANOLOL [Concomitant]
     Active Substance: PROPRANOLOL HYDROCHLORIDE
     Dosage: 120 MILLIGRAM, ONCE A DAY
     Route: 065
  18. OLANZAPINE. [Suspect]
     Active Substance: OLANZAPINE
     Indication: PRODUCT USED FOR UNKNOWN INDICATION
     Dosage: 2.5 MILLIGRAM, ONCE A DAY
     Route: 065
  19. CARBAMAZEPINE. [Interacting]
     Active Substance: CARBAMAZEPINE
     Indication: SEIZURE
     Dosage: 200 MILLIGRAM, ONCE A DAY
     Route: 065

REACTIONS (2)
  - Drug level below therapeutic [Recovering/Resolving]
  - Drug interaction [Recovering/Resolving]
